FAERS Safety Report 18750405 (Version 4)
Quarter: 2021Q2

REPORT INFORMATION
  Report Type: Spontaneous
  Country: US (occurrence: US)
  Receive Date: 20210118
  Receipt Date: 20210415
  Transmission Date: 20210717
  Serious: No
  Sender: FDA-Public Use
  Company Number: US-LUPIN PHARMACEUTICALS INC.-2021-00017

PATIENT
  Sex: Female

DRUGS (2)
  1. OXYCODONE HYDROCHLORIDE TABLETS USP, 15 MG [Suspect]
     Active Substance: OXYCODONE HYDROCHLORIDE
     Dosage: 4 TABLETS AT A TIME
     Route: 048
  2. OXYCODONE HYDROCHLORIDE TABLETS USP, 15 MG [Suspect]
     Active Substance: OXYCODONE HYDROCHLORIDE
     Indication: PAIN MANAGEMENT
     Dosage: 1 DOSAGE FORM (EVERY 4 HOURS), STARTED 2 YEARS AGO
     Route: 048

REACTIONS (3)
  - Incorrect dose administered [Unknown]
  - Drug ineffective [Unknown]
  - Product quality issue [Unknown]
